FAERS Safety Report 16864731 (Version 1)
Quarter: 2019Q3

REPORT INFORMATION
  Report Type: Spontaneous
  Country: JP (occurrence: JP)
  Receive Date: 20190929
  Receipt Date: 20190929
  Transmission Date: 20191005
  Serious: Yes (Death, Life-Threatening, Hospitalization, Other)
  Sender: FDA-Public Use
  Company Number: PHHY2019JP225264

PATIENT
  Age: 50 Year
  Sex: Male

DRUGS (6)
  1. FILGRASTIM [Concomitant]
     Active Substance: FILGRASTIM
     Indication: SEPTIC SHOCK
     Dosage: 150 UG, UNK
     Route: 065
  2. PREDNISOLONE. [Suspect]
     Active Substance: PREDNISOLONE
     Indication: ACUTE LYMPHOCYTIC LEUKAEMIA
     Dosage: 60 MG, QD
     Route: 065
  3. VASOPRESSIN. [Concomitant]
     Active Substance: VASOPRESSIN
     Indication: SEPTIC SHOCK
     Dosage: 1 IU, UNK
     Route: 065
  4. NORADRENALINE [Concomitant]
     Active Substance: NOREPINEPHRINE
     Indication: SEPTIC SHOCK
     Dosage: 0.5 ?G/KG, UNK
     Route: 065
  5. MEROPENEM. [Concomitant]
     Active Substance: MEROPENEM
     Indication: SEPTIC SHOCK
     Dosage: 3 G, UNK
     Route: 065
  6. RASBURICASE [Concomitant]
     Active Substance: RASBURICASE
     Indication: ACUTE LYMPHOCYTIC LEUKAEMIA
     Dosage: 7.5 MG, UNK
     Route: 065

REACTIONS (10)
  - Myocardial calcification [Fatal]
  - Circulatory collapse [Fatal]
  - Electrolyte imbalance [Fatal]
  - Acute left ventricular failure [Fatal]
  - Hepatic failure [Fatal]
  - Acute kidney injury [Fatal]
  - Myocardial necrosis [Fatal]
  - Respiratory failure [Fatal]
  - Hyperphosphataemia [Fatal]
  - Organ failure [Fatal]
